FAERS Safety Report 7479144-6 (Version None)
Quarter: 2011Q2

REPORT INFORMATION
  Report Type: 
  Country: None (occurrence: None)
  Receive Date: 20110511
  Receipt Date: 20110511
  Transmission Date: 20111010
  Serious: Yes (Other)
  Sender: FDA-Public Use
  Company Number: None

PATIENT

DRUGS (1)
  1. TEROCIN (TERODOLORICIN) [Suspect]
     Indication: ANALGESIC THERAPY

REACTIONS (1)
  - PRODUCT QUALITY ISSUE [None]
